FAERS Safety Report 7380834-4 (Version None)
Quarter: 2011Q1

REPORT INFORMATION
  Report Type: 
  Country: None (occurrence: None)
  Receive Date: 20110329
  Receipt Date: 20110323
  Transmission Date: 20110831
  Serious: Yes (Hospitalization)
  Sender: FDA-Public Use
  Company Number: B0669175A

PATIENT
  Sex: Female
  Weight: 58 kg

DRUGS (3)
  1. DEPAKENE [Concomitant]
     Indication: EPILEPSY
     Dosage: 600MG PER DAY
     Route: 048
  2. CARBAMAZEPINE [Concomitant]
     Indication: EPILEPSY
     Dosage: 200MG PER DAY
     Route: 048
     Dates: end: 20100315
  3. LAMICTAL [Suspect]
     Indication: EPILEPSY
     Route: 048
     Dates: start: 20100623, end: 20100711

REACTIONS (2)
  - LIVER FUNCTION TEST ABNORMAL [None]
  - RASH [None]
